FAERS Safety Report 5198034-5 (Version None)
Quarter: 2006Q4

REPORT INFORMATION
  Report Type: 
  Country: None (occurrence: None)
  Receive Date: 20061226
  Receipt Date: 20061218
  Transmission Date: 20070319
  Serious: No
  Sender: FDA-Public Use
  Company Number: 234029

PATIENT
  Age: 15 Year
  Sex: Male
  Weight: 44.7 kg

DRUGS (7)
  1. NUTROPIN [Suspect]
     Indication: RENAL DISORDER
     Dates: start: 20040617, end: 20061117
  2. EPOGEN [Concomitant]
  3. FESO4 (FERROUS SULFATE) [Concomitant]
  4. LORATADINE [Concomitant]
  5. NEPHROCAPS (ASCORBIC ACID, BIOTIN, FOLIC ACID, VITAMIN B COMPLEX) [Concomitant]
  6. RENAGEL [Concomitant]
  7. ROCALTROL [Concomitant]

REACTIONS (1)
  - KNEE DEFORMITY [None]
